FAERS Safety Report 5250902-1 (Version None)
Quarter: 2007Q1

REPORT INFORMATION
  Report Type: 
  Country: None (occurrence: None)
  Receive Date: 20070228
  Receipt Date: 20060725
  Transmission Date: 20070707
  Serious: No
  Sender: FDA-Public Use
  Company Number: US-GLAXOSMITHKLINE-A0613527A

PATIENT
  Age: 29 Year
  Sex: Male

DRUGS (3)
  1. LAMICTAL [Suspect]
     Indication: BIPOLAR DISORDER
     Dosage: 100MG TWICE PER DAY
     Route: 048
     Dates: start: 20060101, end: 20060101
  2. ISONIAZID [Concomitant]
  3. LITHIUM CARBONATE [Concomitant]

REACTIONS (11)
  - BURNING SENSATION [None]
  - COLD SWEAT [None]
  - DIZZINESS [None]
  - INCOHERENT [None]
  - LYMPHADENOPATHY [None]
  - PANIC ATTACK [None]
  - PRURITUS [None]
  - RASH ERYTHEMATOUS [None]
  - SKIN HYPERTROPHY [None]
  - SKIN INDURATION [None]
  - TONGUE GEOGRAPHIC [None]
